FAERS Safety Report 21341727 (Version 1)
Quarter: 2022Q3

REPORT INFORMATION
  Report Type: Spontaneous
  Country: US (occurrence: US)
  Receive Date: 20220916
  Receipt Date: 20220916
  Transmission Date: 20221027
  Serious: No
  Sender: FDA-Public Use
  Company Number: US-GILEAD-2022-0597453

PATIENT
  Sex: Male

DRUGS (1)
  1. EPCLUSA [Suspect]
     Active Substance: SOFOSBUVIR\VELPATASVIR
     Indication: Product used for unknown indication
     Route: 065

REACTIONS (5)
  - Immune system disorder [Unknown]
  - Hypoacusis [Unknown]
  - Feeling abnormal [Unknown]
  - Tendon dislocation [Unknown]
  - Diarrhoea [Unknown]
